FAERS Safety Report 6565983-2 (Version None)
Quarter: 2010Q1

REPORT INFORMATION
  Report Type: 
  Country: None (occurrence: None)
  Receive Date: 20100129
  Receipt Date: 20100129
  Transmission Date: 20100710
  Serious: Yes (Disabling)
  Sender: FDA-Public Use
  Company Number: None

PATIENT
  Age: 63 Year
  Sex: Male
  Weight: 74 kg

DRUGS (3)
  1. IFOSFAMIDE [Suspect]
     Indication: NEOPLASM MALIGNANT
     Dosage: 10000 MG ONCE IV
     Route: 042
     Dates: start: 20090514, end: 20090825
  2. CARBOPLATIN [Suspect]
     Dosage: 400 MG IV
     Route: 042
     Dates: start: 20090514, end: 20090825
  3. MESNA [Suspect]

REACTIONS (3)
  - FANCONI SYNDROME [None]
  - RENAL FAILURE ACUTE [None]
  - STAPHYLOCOCCAL OSTEOMYELITIS [None]
